FAERS Safety Report 6480942-6 (Version None)
Quarter: 2009Q4

REPORT INFORMATION
  Report Type: 
  Country: None (occurrence: None)
  Receive Date: 20091208
  Receipt Date: 20091203
  Transmission Date: 20100525
  Serious: Yes (Death, Life-Threatening, Hospitalization)
  Sender: FDA-Public Use
  Company Number: PHHY2009JP45919

PATIENT
  Sex: Male

DRUGS (1)
  1. STI571/CGP57148B T35717+CAPS [Suspect]
     Indication: CHRONIC MYELOID LEUKAEMIA
     Dosage: 400 MG, QD
     Route: 048
     Dates: start: 20030217, end: 20070104

REACTIONS (7)
  - ATELECTASIS [None]
  - COUGH [None]
  - METASTASES TO ADRENALS [None]
  - METASTASES TO LIVER [None]
  - PNEUMONIA [None]
  - PYREXIA [None]
  - SMALL CELL LUNG CANCER METASTATIC [None]
